FAERS Safety Report 5616192-2 (Version None)
Quarter: 2008Q1

REPORT INFORMATION
  Report Type: 
  Country: None (occurrence: None)
  Receive Date: 20080201
  Receipt Date: 20080122
  Transmission Date: 20080703
  Serious: Yes (Hospitalization)
  Sender: FDA-Public Use
  Company Number: 2007BI023943

PATIENT
  Age: 36 Year
  Sex: Male
  Weight: 63.5036 kg

DRUGS (1)
  1. AVONEX [Suspect]
     Indication: MULTIPLE SCLEROSIS
     Dosage: 30 UG; QW; IM
     Route: 030

REACTIONS (6)
  - ABASIA [None]
  - APHASIA [None]
  - CONDITION AGGRAVATED [None]
  - FAECAL INCONTINENCE [None]
  - MULTIPLE SCLEROSIS [None]
  - URINARY INCONTINENCE [None]
